FAERS Safety Report 8955470 (Version 1)
Quarter: 2012Q4

REPORT INFORMATION
  Report Type: 
  Country: US (occurrence: US)
  Receive Date: 20121207
  Receipt Date: 20121207
  Transmission Date: 20130627
  Serious: No
  Sender: FDA-Public Use
  Company Number: US-009507513-1212USA000201

PATIENT
  Age: 32 Year
  Sex: Female

DRUGS (2)
  1. NUVARING [Suspect]
     Indication: CONTRACEPTION
     Dosage: One ring, qm
     Route: 067
     Dates: start: 201105, end: 20120524
  2. ORTHO TRI CYCLEN [Suspect]

REACTIONS (2)
  - Bone density increased [Recovered/Resolved]
  - Skin discolouration [Unknown]
